FAERS Safety Report 8968233 (Version 1)
Quarter: 2012Q4

REPORT INFORMATION
  Report Type: 
  Country: PT (occurrence: PT)
  Receive Date: 20121218
  Receipt Date: 20121218
  Transmission Date: 20130627
  Serious: Yes (Life-Threatening)
  Sender: FDA-Public Use
  Company Number: PT-PFIZER INC-2012270759

PATIENT
  Sex: Male

DRUGS (2)
  1. TORISEL [Suspect]
     Indication: RENAL CELL CARCINOMA
     Dosage: UNK
     Route: 042
     Dates: start: 201210, end: 201210
  2. DEXAMETHASONE [Concomitant]
     Indication: PROPHYLACTIC CHEMOTHERAPY

REACTIONS (3)
  - Respiratory arrest [Recovered/Resolved]
  - Reaction to drug excipients [Recovered/Resolved]
  - Product quality issue [Recovered/Resolved]
